FAERS Safety Report 5536179-8 (Version None)
Quarter: 2007Q4

REPORT INFORMATION
  Report Type: 
  Country: None (occurrence: None)
  Receive Date: 20071206
  Receipt Date: 20071128
  Transmission Date: 20080405
  Serious: Yes (Hospitalization, Other)
  Sender: FDA-Public Use
  Company Number: US-PFIZER INC-2007005723

PATIENT
  Sex: Male
  Weight: 113.4 kg

DRUGS (3)
  1. CELEBREX [Suspect]
     Indication: ARTHRITIS
     Route: 048
  2. VIOXX [Suspect]
     Indication: ARTHRITIS
     Route: 048
     Dates: start: 20000101
  3. IBUPROFEN [Concomitant]
     Indication: ARTHRITIS
     Dates: start: 19950621, end: 20040704

REACTIONS (2)
  - CEREBROVASCULAR ACCIDENT [None]
  - RETINAL VASCULAR OCCLUSION [None]
